FAERS Safety Report 21717015 (Version 3)
Quarter: 2022Q4

REPORT INFORMATION
  Report Type: Spontaneous
  Country: US (occurrence: US)
  Receive Date: 20221212
  Receipt Date: 20221223
  Transmission Date: 20230112
  Serious: Yes (Hospitalization, Other)
  Sender: FDA-Public Use
  Company Number: US-DSPHARMA-2022SUN003390

PATIENT
  Age: 63 Year
  Sex: Female

DRUGS (1)
  1. LATUDA [Suspect]
     Active Substance: LURASIDONE HYDROCHLORIDE
     Dosage: 40 MG, QD
     Route: 048

REACTIONS (6)
  - Road traffic accident [Unknown]
  - Ankle fracture [Unknown]
  - Anxiety [Unknown]
  - Suicidal ideation [Unknown]
  - Mental disorder [Unknown]
  - Negative thoughts [Unknown]
